FAERS Safety Report 9271877 (Version 1)
Quarter: 2013Q2

REPORT INFORMATION
  Report Type: Spontaneous
  Country: FR (occurrence: FR)
  Receive Date: 20130506
  Receipt Date: 20130506
  Transmission Date: 20140414
  Serious: Yes (Hospitalization)
  Sender: FDA-Public Use
  Company Number: FR-BAYER-2013-054965

PATIENT
  Age: 39 Year
  Sex: Female

DRUGS (7)
  1. ULTRAVIST [Suspect]
     Indication: COMPUTERISED TOMOGRAM HEAD
     Dosage: UNK
     Route: 042
     Dates: start: 20121012, end: 20121012
  2. CIFLOX [Suspect]
     Indication: PNEUMONIA
     Dosage: UNK
     Dates: start: 20121016, end: 20121021
  3. AZANTAC [Suspect]
     Dosage: UNK
     Dates: start: 20121009, end: 20121021
  4. URBANYL [Suspect]
     Dosage: UNK
     Route: 048
     Dates: start: 20121009, end: 20121018
  5. KEPPRA [Suspect]
     Dosage: UNK
     Route: 048
     Dates: start: 20121009, end: 20121020
  6. FORTUM [Suspect]
     Indication: PNEUMONIA
     Dosage: UNK
     Route: 042
     Dates: start: 20121016, end: 20121018
  7. GENTAMICINE [Suspect]
     Dosage: UNK
     Route: 042
     Dates: start: 20121018, end: 20121020

REACTIONS (1)
  - Drug reaction with eosinophilia and systemic symptoms [Recovered/Resolved]
